FAERS Safety Report 16685649 (Version 2)
Quarter: 2019Q3

REPORT INFORMATION
  Report Type: Spontaneous
  Country: US (occurrence: US)
  Receive Date: 20190809
  Receipt Date: 20190903
  Transmission Date: 20191004
  Serious: No
  Sender: FDA-Public Use
  Company Number: US-SA-2019SA213298

PATIENT
  Age: 58 Year
  Sex: Female
  Weight: 51 kg

DRUGS (6)
  1. DUPIXENT [Suspect]
     Active Substance: DUPILUMAB
     Dosage: 300 MG, QOW
     Route: 058
  2. FLONASE [MOMETASONE FUROATE] [Concomitant]
     Active Substance: MOMETASONE FUROATE
     Dosage: UNK UNK, BID (1 SPRAY EACH NOSTRIL)
     Route: 045
  3. AZELASTINE. [Concomitant]
     Active Substance: AZELASTINE HYDROCHLORIDE
     Dosage: UNK UNK, BID (2 SPRAYS EACH NOSTRIL)
     Route: 045
  4. DUPIXENT [Suspect]
     Active Substance: DUPILUMAB
     Indication: ASTHMA
     Dosage: 600 MG, 1X
     Route: 058
     Dates: start: 20190629, end: 20190629
  5. DUPIXENT [Suspect]
     Active Substance: DUPILUMAB
     Dosage: UNK
     Dates: start: 20190727, end: 20190731
  6. PREDNISONE. [Concomitant]
     Active Substance: PREDNISONE
     Indication: CHRONIC SINUSITIS
     Dosage: 5 MG, QD
     Route: 048

REACTIONS (5)
  - Seasonal allergy [Not Recovered/Not Resolved]
  - Ocular hyperaemia [Recovering/Resolving]
  - Rhinorrhoea [Not Recovered/Not Resolved]
  - Eye swelling [Recovering/Resolving]
  - Exposure keratitis [Unknown]

NARRATIVE: CASE EVENT DATE: 20190728
